FAERS Safety Report 16925522 (Version 2)
Quarter: 2019Q4

REPORT INFORMATION
  Report Type: Spontaneous
  Country: BR (occurrence: BR)
  Receive Date: 20191016
  Receipt Date: 20191018
  Transmission Date: 20200122
  Serious: Yes (Hospitalization, Other)
  Sender: FDA-Public Use
  Company Number: BR-PFIZER INC-2019436185

PATIENT
  Age: 26 Year
  Sex: Female
  Weight: 80 kg

DRUGS (11)
  1. LYRICA [Suspect]
     Active Substance: PREGABALIN
     Dosage: 300 MG, DAILY
     Dates: start: 2007
  2. BUPROPION. [Concomitant]
     Active Substance: BUPROPION
     Dosage: 150 MG, UNK
  3. CYMBALTA [Concomitant]
     Active Substance: DULOXETINE HYDROCHLORIDE
     Dosage: 140 MG, DAILY
     Dates: start: 2005
  4. LYRICA [Suspect]
     Active Substance: PREGABALIN
     Indication: FIBROMYALGIA
     Dosage: 75 MG, UNK
     Dates: start: 2007, end: 2007
  5. ASPIRIN [ACETYLSALICYLIC ACID] [Concomitant]
     Active Substance: ASPIRIN
     Dosage: 1 MG, DAILY
  6. NOVALGINA [Concomitant]
     Active Substance: METAMIZOLE SODIUM
     Dosage: UNK, DAILY
  7. MORPHINE [Concomitant]
     Active Substance: MORPHINE
     Dosage: 30 MG, DAILY
  8. LYRICA [Suspect]
     Active Substance: PREGABALIN
     Indication: BONE DISORDER
     Dosage: 850 MG, DAILY
     Dates: start: 2007, end: 2007
  9. LYRICA [Suspect]
     Active Substance: PREGABALIN
     Indication: CONGENITAL NEUROPATHY
     Dosage: 2400 MG, DAILY
     Dates: start: 2007, end: 2007
  10. OXYCONTIN [Suspect]
     Active Substance: OXYCODONE HYDROCHLORIDE
     Indication: PAIN
     Dosage: 40 MG, DAILY, (2 TABLETS DAILY)
     Dates: start: 201910
  11. ZOLPIDEM [Concomitant]
     Active Substance: ZOLPIDEM TARTRATE
     Dosage: UNK
     Dates: start: 2019

REACTIONS (5)
  - Somnolence [Unknown]
  - Prescribed overdose [Unknown]
  - Hernia [Not Recovered/Not Resolved]
  - Feeling abnormal [Unknown]
  - Gait inability [Unknown]

NARRATIVE: CASE EVENT DATE: 2007
